FAERS Safety Report 6157161-6 (Version None)
Quarter: 2009Q2

REPORT INFORMATION
  Report Type: 
  Country: None (occurrence: None)
  Receive Date: 20090416
  Receipt Date: 20090409
  Transmission Date: 20091009
  Serious: Yes (Other)
  Sender: FDA-Public Use
  Company Number: US-ABBOTT-08P-163-0450998-00

PATIENT
  Sex: Male
  Weight: 98.064 kg

DRUGS (6)
  1. HUMIRA [Suspect]
     Indication: RHEUMATOID ARTHRITIS
     Route: 058
     Dates: start: 20030501, end: 20080420
  2. HUMIRA [Suspect]
     Route: 058
     Dates: start: 20081001, end: 20090119
  3. HUMIRA [Suspect]
     Indication: RHEUMATOID ARTHRITIS
     Dates: end: 20090119
  4. METHOTREXATE [Concomitant]
     Indication: RHEUMATOID ARTHRITIS
     Route: 048
     Dates: end: 20080401
  5. FOLIC ACID [Concomitant]
     Indication: MEDICAL DIET
     Route: 048
     Dates: end: 20080401
  6. PREDNISONE [Concomitant]
     Indication: RHEUMATOID ARTHRITIS
     Route: 048

REACTIONS (2)
  - COLON CANCER [None]
  - HEPATIC NEOPLASM MALIGNANT [None]
